FAERS Safety Report 24939216 (Version 1)
Quarter: 2025Q1

REPORT INFORMATION
  Report Type: Spontaneous
  Country: PL (occurrence: PL)
  Receive Date: 20250206
  Receipt Date: 20250206
  Transmission Date: 20250409
  Serious: No
  Sender: EXELIXIS
  Company Number: None

PATIENT
  Age: 56 Year
  Sex: Male
  Weight: 125 kg

DRUGS (1)
  1. CABOMETYX [Suspect]
     Active Substance: CABOZANTINIB S-MALATE
     Indication: Product used for unknown indication
     Dosage: DOSE REDUCTION FROM 60 MG TO 40 MG AFTER THE FIRST TWO TREATMENT CYCLES
     Route: 048
     Dates: start: 20191119

REACTIONS (2)
  - Ulcer [Recovering/Resolving]
  - Scrotal ulcer [Recovering/Resolving]
